FAERS Safety Report 8410804-6 (Version None)
Quarter: 2012Q2

REPORT INFORMATION
  Report Type: 
  Country: None (occurrence: None)
  Receive Date: 20120529
  Receipt Date: 20051201
  Transmission Date: 20120825
  Serious: Yes (Hospitalization)
  Sender: FDA-Public Use
  Company Number: 15691-USA-05-2989

PATIENT
  Age: 58 Year
  Sex: Male

DRUGS (16)
  1. IPRATROPIUM BROMIDE [Concomitant]
  2. LOVASTATIN [Concomitant]
  3. COLESTIPOL (COLESTIPOL) [Concomitant]
  4. ALLOPURINOL [Concomitant]
  5. ACETAMINOPHEN [Concomitant]
  6. DIGOXIN (DIGODIN) [Concomitant]
  7. ASPIRIN [Concomitant]
  8. WARFARIN SODIUM [Concomitant]
  9. ALPROSTADIL [Concomitant]
  10. GUAIFENESIN [Concomitant]
  11. METOPROLOL SUCCINATE [Concomitant]
  12. NITROGLYCERIN ^A.L.^ (GLYCERYL TRINITRATE) [Concomitant]
  13. INDOMETHACIN (INDOMETACIN0 [Concomitant]
  14. CEFPODOXIME PROXETIL [Concomitant]
  15. TOLVAPTAN (TOLVAPTAN(V4.1)) 30MG [Suspect]
     Indication: CARDIAC FAILURE CONGESTIVE
     Dosage: 30 MG, QD, ORAL
     Route: 048
     Dates: start: 20050303
  16. POTASSIUM CHLORIDE [Concomitant]

REACTIONS (2)
  - CONDITION AGGRAVATED [None]
  - GOUT [None]
